FAERS Safety Report 17867139 (Version 5)
Quarter: 2022Q4

REPORT INFORMATION
  Report Type: Report from Study
  Country: US (occurrence: US)
  Receive Date: 20200605
  Receipt Date: 20221013
  Transmission Date: 20230112
  Serious: Yes (Other)
  Sender: FDA-Public Use
  Company Number: US-GILEAD-2020-0469805

PATIENT
  Age: 51 Year
  Sex: Female

DRUGS (3)
  1. AMBRISENTAN [Suspect]
     Active Substance: AMBRISENTAN
     Indication: Pulmonary hypertension
     Dosage: 10 MG
     Route: 065
     Dates: start: 20110725
  2. AMBRISENTAN [Suspect]
     Active Substance: AMBRISENTAN
     Dosage: 10 MG, QD
     Route: 048
     Dates: start: 20160407
  3. OXYGEN [Concomitant]
     Active Substance: OXYGEN

REACTIONS (9)
  - Dislocation of vertebra [Not Recovered/Not Resolved]
  - Intra-abdominal haemorrhage [Unknown]
  - Bedridden [Not Recovered/Not Resolved]
  - Pain [Not Recovered/Not Resolved]
  - Abdominal distension [Unknown]
  - Fatigue [Not Recovered/Not Resolved]
  - Headache [Unknown]
  - Vulvovaginal pain [Not Recovered/Not Resolved]
  - Product use issue [Not Recovered/Not Resolved]
